FAERS Safety Report 24812068 (Version 5)
Quarter: 2025Q4

REPORT INFORMATION
  Report Type: Report from Study
  Country: US (occurrence: US)
  Receive Date: 20250106
  Receipt Date: 20251216
  Transmission Date: 20260118
  Serious: No
  Sender: PFIZER
  Company Number: US-PFIZER INC-PV202400115823

PATIENT
  Age: 17 Year
  Sex: Female
  Weight: 74.83 kg

DRUGS (4)
  1. CIBINQO [Suspect]
     Active Substance: ABROCITINIB
     Indication: Eczema
     Dosage: 100 MG, DAILY
     Route: 048
     Dates: start: 2024
  2. CIBINQO [Suspect]
     Active Substance: ABROCITINIB
     Dosage: 100 MG, DAILY
     Route: 048
     Dates: start: 20250108
  3. CIBINQO [Suspect]
     Active Substance: ABROCITINIB
     Dosage: 200 MG, DAILY (100 MG, TAKE 2 TABS)
     Route: 048
  4. DUPIXENT [Concomitant]
     Active Substance: DUPILUMAB
     Indication: Asthma
     Dosage: UNK

REACTIONS (3)
  - Sinusitis [Recovered/Resolved]
  - Condition aggravated [Unknown]
  - Therapeutic product effect incomplete [Unknown]

NARRATIVE: CASE EVENT DATE: 20240101
